FAERS Safety Report 13943468 (Version 1)
Quarter: 2017Q3

REPORT INFORMATION
  Report Type: Spontaneous
  Country: SI (occurrence: SI)
  Receive Date: 20170907
  Receipt Date: 20170907
  Transmission Date: 20171128
  Serious: Yes (Other)
  Sender: FDA-Public Use
  Company Number: SI-TEVA-802309ACC

PATIENT
  Age: 79 Year
  Sex: Female

DRUGS (1)
  1. BOPACATIN 10 MG/ML [Suspect]
     Active Substance: CARBOPLATIN
     Indication: OVARIAN CANCER RECURRENT
     Dosage: 450 MILLIGRAM DAILY;
     Route: 042
     Dates: start: 20170817, end: 20170817

REACTIONS (1)
  - Infusion related reaction [Recovered/Resolved]

NARRATIVE: CASE EVENT DATE: 20170817
